FAERS Safety Report 20562297 (Version 1)
Quarter: 2022Q1

REPORT INFORMATION
  Report Type: Spontaneous
  Country: US (occurrence: None)
  Receive Date: 20220307
  Receipt Date: 20220307
  Transmission Date: 20220423
  Serious: No
  Sender: FDA-Public Use
  Company Number: None

PATIENT

DRUGS (2)
  1. DEVICE [Suspect]
     Active Substance: DEVICE
     Route: 042
  2. INTRALIPID [Suspect]
     Active Substance: EGG PHOSPHOLIPIDS\GLYCERIN\SOYBEAN OIL
     Route: 042

REACTIONS (3)
  - Product storage error [None]
  - Product packaging confusion [None]
  - Product barcode issue [None]

NARRATIVE: CASE EVENT DATE: 20211211
